FAERS Safety Report 10064500 (Version 2)
Quarter: 2014Q2

REPORT INFORMATION
  Report Type: Not Available
  Country: IT (occurrence: IT)
  Receive Date: 20140408
  Receipt Date: 20140410
  Transmission Date: 20141212
  Serious: Yes (Hospitalization)
  Sender: FDA-Public Use
  Company Number: IT-ASTELLAS-2014US003592

PATIENT
  Age: 53 Year
  Sex: Male
  Weight: 120 kg

DRUGS (4)
  1. AMBISOME [Suspect]
     Indication: LEISHMANIASIS
     Dosage: 3 UG/KG, UNKNOWN/D
     Route: 065
     Dates: start: 20140115, end: 20140122
  2. AMBISOME [Suspect]
     Dosage: 3 MG/KG, UID/QD
     Route: 065
     Dates: start: 20140129
  3. TRIMETON                           /00072502/ [Concomitant]
     Indication: PRODUCT USED FOR UNKNOWN INDICATION
     Dosage: UNK
     Route: 065
  4. BENTELAN [Concomitant]
     Indication: PRODUCT USED FOR UNKNOWN INDICATION
     Dosage: UNK
     Route: 065

REACTIONS (1)
  - Azotaemia [Recovering/Resolving]
